FAERS Safety Report 4287109-0 (Version None)
Quarter: 2004Q1

REPORT INFORMATION
  Report Type: 
  Country: None (occurrence: None)
  Receive Date: 20040204
  Receipt Date: 20040120
  Transmission Date: 20041129
  Serious: Yes (Hospitalization)
  Sender: FDA-Public Use
  Company Number: 204366

PATIENT
  Age: 58 Year
  Sex: Female
  Weight: 71 kg

DRUGS (5)
  1. HERCEPTIN [Suspect]
     Indication: BREAST CANCER METASTATIC
     Dosage: SEE IMAGE
     Route: 042
     Dates: start: 20031118, end: 20031118
  2. HERCEPTIN [Suspect]
     Indication: BREAST CANCER METASTATIC
     Dosage: SEE IMAGE
     Route: 042
     Dates: start: 20031125
  3. CYCLOPHOSPHAMIDE [Suspect]
     Indication: BREAST CANCER METASTATIC
     Dosage: 600 MG/KG, Q4W, INTRAVENOUS
     Route: 042
     Dates: start: 20031118
  4. FLUOROURACIL [Suspect]
     Indication: BREAST CANCER METASTATIC
     Dosage: 600 MG/M2, Q4W, INTRAVENOUS
     Route: 042
     Dates: start: 20031118
  5. METHOTREXATE [Suspect]
     Indication: BREAST CANCER METASTATIC
     Dosage: 40 MG/M2, Q4W, INTRAVENOUS
     Route: 042
     Dates: start: 20031118

REACTIONS (1)
  - FEBRILE NEUTROPENIA [None]
